FAERS Safety Report 8995055 (Version 1)
Quarter: 2013Q1

REPORT INFORMATION
  Report Type: Spontaneous
  Country: US (occurrence: US)
  Receive Date: 20130102
  Receipt Date: 20130102
  Transmission Date: 20140127
  Serious: Yes (Death)
  Sender: FDA-Public Use
  Company Number: US-UCBSA-060083

PATIENT
  Age: 54 Year
  Sex: Male
  Weight: 83.91 kg

DRUGS (7)
  1. KEPPRA [Suspect]
     Indication: CONVULSION
     Route: 048
     Dates: start: 201203, end: 20120428
  2. KEPPRA [Suspect]
     Indication: CONVULSION
     Dosage: 500 MG; 1PILL IN THE AM AND 2 PILLS IN THE PM
     Route: 048
     Dates: start: 201202, end: 2012
  3. KEPPRA [Suspect]
     Indication: CONVULSION
     Dosage: 1 PILL IN THE AM +1 PILL IN THE PM
     Route: 048
     Dates: start: 20120215, end: 201202
  4. TEGRETOL [Concomitant]
     Indication: CONVULSION
     Route: 048
     Dates: end: 20120428
  5. DILANTIN [Concomitant]
     Indication: CONVULSION
     Route: 048
     Dates: end: 20120428
  6. PRAVASTATIN [Concomitant]
     Indication: BLOOD CHOLESTEROL
     Route: 048
     Dates: end: 20120428
  7. XANAX [Concomitant]
     Indication: SLEEP DISORDER
     Dosage: AT BEDTIME
     Route: 048
     Dates: end: 20120427

REACTIONS (2)
  - Completed suicide [Fatal]
  - Convulsion [Recovered/Resolved]
